FAERS Safety Report 8509242-7 (Version None)
Quarter: 2012Q3

REPORT INFORMATION
  Report Type: 
  Country: None (occurrence: None)
  Receive Date: 20120713
  Receipt Date: 20120705
  Transmission Date: 20120928
  Serious: Yes (Other)
  Sender: FDA-Public Use
  Company Number: US-PFIZER INC-2010012108

PATIENT
  Sex: Female
  Weight: 75 kg

DRUGS (4)
  1. LIPITOR [Suspect]
     Indication: BLOOD CHOLESTEROL INCREASED
     Dosage: 20 MG, 1X/DAY
     Route: 048
     Dates: start: 20020101
  2. SYNTHROID [Suspect]
     Indication: THYROID DISORDER
     Dosage: UNK
     Route: 048
  3. CELEBREX [Suspect]
     Indication: ARTHRITIS
     Dosage: 200 MG, 1X/DAY
     Route: 048
  4. LOTREL [Concomitant]
     Indication: BLOOD PRESSURE
     Dosage: UNK
     Route: 048

REACTIONS (18)
  - TONGUE PARALYSIS [None]
  - FRACTURE [None]
  - ALOPECIA [None]
  - SWOLLEN TONGUE [None]
  - MUSCLE ATROPHY [None]
  - SPINAL COLUMN STENOSIS [None]
  - NEUROPATHY PERIPHERAL [None]
  - FALL [None]
  - LOWER LIMB FRACTURE [None]
  - DEPRESSION [None]
  - MALAISE [None]
  - INTERVERTEBRAL DISC PROTRUSION [None]
  - SPINAL FRACTURE [None]
  - ANXIETY [None]
  - NERVE INJURY [None]
  - ANKLE FRACTURE [None]
  - CRYING [None]
  - SCIATICA [None]
